FAERS Safety Report 8571854-2 (Version None)
Quarter: 2012Q2

REPORT INFORMATION
  Report Type: 
  Country: None (occurrence: None)
  Receive Date: 20120418
  Receipt Date: 20091124
  Transmission Date: 20120825
  Serious: Yes (Other)
  Sender: FDA-Public Use
  Company Number: PHEH2009US10305

PATIENT
  Age: 67 Year
  Sex: Female

DRUGS (6)
  1. ZOCOR [Concomitant]
  2. ASPIRIN [Concomitant]
  3. LEVOXYL [Concomitant]
  4. AMLODIPINE [Concomitant]
  5. DIOVAN HCT [Suspect]
     Indication: HYPERTENSION
     Dosage: 160/25M, ORAL
     Route: 048
     Dates: start: 20081117, end: 20090821
  6. SIMVASTATIN [Concomitant]

REACTIONS (3)
  - DEHYDRATION [None]
  - MALAISE [None]
  - HYPONATRAEMIA [None]
